FAERS Safety Report 5441957-X (Version None)
Quarter: 2007Q3

REPORT INFORMATION
  Report Type: 
  Country: None (occurrence: None)
  Receive Date: 20070904
  Receipt Date: 20070828
  Transmission Date: 20080115
  Serious: Yes (Hospitalization)
  Sender: FDA-Public Use
  Company Number: B0433383A

PATIENT
  Age: 40 Year
  Sex: Male

DRUGS (4)
  1. LAMICTAL [Suspect]
     Indication: EPILEPSY
     Dosage: 50MG TWICE PER DAY
     Route: 048
     Dates: end: 20060522
  2. ALEPSAL [Concomitant]
     Indication: EPILEPSY
     Dosage: 100MG IN THE MORNING
     Route: 048
  3. DEPAKENE [Concomitant]
     Indication: EPILEPSY
     Dosage: 750MG THREE TIMES PER DAY
     Route: 048
  4. NEURONTIN [Concomitant]
     Indication: EPILEPSY
     Dosage: 1600MG PER DAY
     Route: 048

REACTIONS (8)
  - ABDOMINAL PAIN [None]
  - COMA [None]
  - DIARRHOEA [None]
  - GASTROINTESTINAL HAEMORRHAGE [None]
  - GLOMERULONEPHRITIS [None]
  - HENOCH-SCHONLEIN PURPURA [None]
  - PURPURA [None]
  - RENAL FAILURE ACUTE [None]
